FAERS Safety Report 8587926-2 (Version None)
Quarter: 2012Q3

REPORT INFORMATION
  Report Type: 
  Country: None (occurrence: None)
  Receive Date: 20120813
  Receipt Date: 20120801
  Transmission Date: 20120928
  Serious: No
  Sender: FDA-Public Use
  Company Number: US-BIOGENIDEC-2012BI029588

PATIENT
  Age: 46 Year
  Sex: Female

DRUGS (1)
  1. TYSABRI [Suspect]
     Indication: MULTIPLE SCLEROSIS
     Route: 042
     Dates: start: 20110802

REACTIONS (7)
  - BLEPHAROSPASM [None]
  - BALANCE DISORDER [None]
  - NASAL CONGESTION [None]
  - DIZZINESS [None]
  - CHEST DISCOMFORT [None]
  - GAIT DISTURBANCE [None]
  - COORDINATION ABNORMAL [None]
